FAERS Safety Report 21139423 (Version 1)
Quarter: 2022Q3

REPORT INFORMATION
  Report Type: Spontaneous
  Country: US (occurrence: US)
  Receive Date: 20220727
  Receipt Date: 20220727
  Transmission Date: 20221026
  Serious: No
  Sender: FDA-Public Use
  Company Number: US-ALKERMES INC.-ALK-2022-003569

PATIENT

DRUGS (1)
  1. VIVITROL [Suspect]
     Active Substance: NALTREXONE
     Indication: Product used for unknown indication
     Dosage: 380 MILLIGRAM, QMO
     Route: 030

REACTIONS (6)
  - Liver disorder [Unknown]
  - Tachyphrenia [Unknown]
  - Nausea [Unknown]
  - Depression [Unknown]
  - Decreased appetite [Unknown]
  - Sleep disorder [Unknown]
